FAERS Safety Report 8351949-9 (Version None)
Quarter: 2012Q2

REPORT INFORMATION
  Report Type: 
  Country: None (occurrence: None)
  Receive Date: 20120511
  Receipt Date: 20120430
  Transmission Date: 20120825
  Serious: Yes (Hospitalization)
  Sender: FDA-Public Use
  Company Number: US-ELI_LILLY_AND_COMPANY-US201205000327

PATIENT
  Sex: Female

DRUGS (6)
  1. CARBAMAZEPINE [Concomitant]
  2. OXYCONTIN [Concomitant]
  3. FORTEO [Suspect]
     Indication: FRACTURE DELAYED UNION
     Dosage: 20 UG, QD
     Dates: start: 20120201
  4. PANTOPRAZOLE [Concomitant]
  5. ALPRAZOLAM [Concomitant]
  6. CYMBALTA [Concomitant]
     Indication: DEPRESSION
     Dosage: 60 MG, QD

REACTIONS (3)
  - SEASONAL ALLERGY [None]
  - EMPHYSEMA [None]
  - DYSPNOEA [None]
